FAERS Safety Report 12139796 (Version 1)
Quarter: 2016Q1

REPORT INFORMATION
  Report Type: Spontaneous
  Country: US (occurrence: None)
  Receive Date: 20160302
  Receipt Date: 20160302
  Transmission Date: 20160526
  Serious: No
  Sender: FDA-Public Use
  Company Number: None

PATIENT
  Age: 58 Year
  Sex: Female

DRUGS (1)
  1. CAPECITABINE 500MG TEVA [Suspect]
     Active Substance: CAPECITABINE
     Indication: BREAST CANCER
     Route: 048
     Dates: start: 20151223, end: 20160229

REACTIONS (4)
  - Skin exfoliation [None]
  - Nausea [None]
  - Bone pain [None]
  - Nail disorder [None]

NARRATIVE: CASE EVENT DATE: 20151229
